FAERS Safety Report 11774294 (Version 2)
Quarter: 2015Q4

REPORT INFORMATION
  Report Type: Other
  Country: JP (occurrence: JP)
  Receive Date: 20151124
  Receipt Date: 20151211
  Transmission Date: 20160304
  Serious: Yes (Other)
  Sender: FDA-Public Use
  Company Number: JP-DSJP-DSJ-2015-136290

PATIENT

DRUGS (2)
  1. OLMETEC TABLETS 20MG [Suspect]
     Active Substance: OLMESARTAN MEDOXOMIL
     Indication: PRODUCT USED FOR UNKNOWN INDICATION
     Dosage: UNK
     Route: 065
     Dates: start: 201501, end: 201503
  2. PARIET [Suspect]
     Active Substance: RABEPRAZOLE SODIUM
     Dosage: UNK
     Route: 065

REACTIONS (2)
  - Drug-induced liver injury [Unknown]
  - Abdominal discomfort [Unknown]
